FAERS Safety Report 9365159 (Version 2)
Quarter: 2013Q3

REPORT INFORMATION
  Report Type: Spontaneous
  Country: US (occurrence: US)
  Receive Date: 20130624
  Receipt Date: 20130712
  Transmission Date: 20140515
  Serious: Yes (Other)
  Sender: FDA-Public Use
  Company Number: PHHY2013US062757

PATIENT
  Age: 24 Year
  Sex: Male

DRUGS (13)
  1. QUETIAPINE [Suspect]
     Dosage: 500 MG AT NIGHT
  2. QUETIAPINE [Suspect]
     Dosage: 300 MG AT NIGHT
  3. RISPERIDONE [Suspect]
     Dosage: 2 MG, BID
  4. SERTRALINE [Suspect]
     Dosage: 200 MG, QD
  5. SERTRALINE [Suspect]
     Dosage: 250 MG
  6. SERTRALINE [Suspect]
     Dosage: 200 MG
  7. LAMOTRIGINE [Concomitant]
     Dosage: 100 MG, BID
  8. LAMOTRIGINE [Concomitant]
     Dosage: 200 MG, BID
  9. ACETYLCYSTEINE [Concomitant]
     Dosage: 900 MG, TID
  10. GABAPENTIN [Concomitant]
     Dosage: 600 MG, TID
  11. ESZOPICLONE [Concomitant]
     Dosage: 3 MG, QD BEFORE BED TIME
  12. POLYCARBOPHIL CALCIUM [Concomitant]
     Dosage: 625 MG, TID
  13. DOCUSATE SODIUM [Concomitant]
     Dosage: 100 MG, TID

REACTIONS (5)
  - Hypomania [Recovered/Resolved]
  - Anxiety [Recovered/Resolved]
  - Restlessness [Unknown]
  - Musculoskeletal stiffness [Unknown]
  - Constipation [Recovering/Resolving]
